FAERS Safety Report 9393838 (Version 2)
Quarter: 2013Q3

REPORT INFORMATION
  Report Type: Spontaneous
  Country: US (occurrence: US)
  Receive Date: 20130710
  Receipt Date: 20130715
  Transmission Date: 20140515
  Serious: Yes (Hospitalization, Other)
  Sender: FDA-Public Use
  Company Number: US-PFIZER INC-2013201274

PATIENT
  Age: 59 Year
  Sex: Male

DRUGS (6)
  1. CHANTIX [Suspect]
     Dosage: UNK
     Dates: start: 20080918, end: 20080925
  2. METFORMIN [Concomitant]
     Indication: DIABETES MELLITUS
     Dosage: 500 MG, 1X/DAY
     Route: 048
  3. DICLOFENAC SODIUM [Concomitant]
     Dosage: 75 MG, 2X/DAY
     Route: 048
  4. TARKA 240/4 MG [Concomitant]
     Indication: HYPERTENSION
     Dosage: 240/4 MG DAILY
     Route: 048
  5. LIPITOR [Concomitant]
     Indication: HYPERLIPIDAEMIA
     Dosage: 10 MG, 1X/DAY
     Route: 048
  6. DILANTIN [Concomitant]
     Dosage: 200 MG, 2X/DAY
     Route: 048

REACTIONS (5)
  - Partial seizures [Unknown]
  - Convulsion [Unknown]
  - Demyelination [Unknown]
  - Mitral valve calcification [Unknown]
  - Urinary incontinence [Unknown]
